FAERS Safety Report 4487775-0 (Version None)
Quarter: 2004Q4

REPORT INFORMATION
  Report Type: 
  Country: None (occurrence: None)
  Receive Date: 20041028
  Receipt Date: 20031014
  Transmission Date: 20050328
  Serious: Yes (Death)
  Sender: FDA-Public Use
  Company Number: PHHO2003JP13032

PATIENT
  Age: 51 Year
  Sex: Male
  Weight: 56 kg

DRUGS (2)
  1. GLEEVEC [Suspect]
     Indication: CHRONIC MYELOID LEUKAEMIA
     Dosage: 400 MG, QD
     Route: 048
     Dates: start: 20020902, end: 20020919
  2. GLEEVEC [Suspect]
     Dosage: UNK, UNK
     Route: 048
     Dates: start: 20020930, end: 20030625

REACTIONS (1)
  - CEREBRAL HAEMORRHAGE [None]
